FAERS Safety Report 4886374-6 (Version None)
Quarter: 2006Q1

REPORT INFORMATION
  Report Type: 
  Country: None (occurrence: None)
  Receive Date: 20060120
  Receipt Date: 20051005
  Transmission Date: 20060701
  Serious: Yes (Death, Other)
  Sender: FDA-Public Use
  Company Number: US-MERCK-0510USA04790

PATIENT
  Age: 77 Year
  Sex: Female

DRUGS (1)
  1. VIOXX [Suspect]
     Route: 048

REACTIONS (4)
  - DEATH [None]
  - MYOCARDIAL INFARCTION [None]
  - RENAL DISORDER [None]
  - THROMBOSIS [None]
